FAERS Safety Report 7322469 (Version 2)
Quarter: 2015Q4

REPORT INFORMATION
  Report Type: Spontaneous
  Country: US (occurrence: US)
  Receive Date: 20100317
  Receipt Date: 20151110
  Transmission Date: 20160305
  Serious: Yes (Hospitalization, Other)
  Sender: FDA-Public Use
  Company Number: US-ASTRAZENECA-2010SE09911

PATIENT
  Age: 72 Year
  Sex: Male
  Weight: 59 kg

DRUGS (11)
  1. METAMUCIL [Concomitant]
     Active Substance: PLANTAGO SEED
     Route: 048
     Dates: start: 1980
  2. MAGNESIUM OXIDE. [Concomitant]
     Active Substance: MAGNESIUM OXIDE
     Indication: BLOOD MAGNESIUM DECREASED
     Route: 048
     Dates: start: 2012
  3. PRILOSEC [Suspect]
     Active Substance: OMEPRAZOLE MAGNESIUM
     Indication: GASTROOESOPHAGEAL REFLUX DISEASE
     Route: 048
     Dates: start: 1980
  4. PRILOSEC [Suspect]
     Active Substance: OMEPRAZOLE MAGNESIUM
     Indication: GASTROOESOPHAGEAL REFLUX DISEASE
     Dosage: 40 MG, DAILY, OMEPRAZOLE
     Route: 048
     Dates: start: 20151028
  5. ASPIRIN. [Concomitant]
     Active Substance: ASPIRIN
     Indication: CARDIAC DISORDER
     Route: 048
     Dates: start: 2010
  6. LASIX [Concomitant]
     Active Substance: FUROSEMIDE
  7. PRILOSEC [Suspect]
     Active Substance: OMEPRAZOLE MAGNESIUM
     Indication: GASTROOESOPHAGEAL REFLUX DISEASE
     Route: 048
     Dates: start: 2013
  8. PRILOSEC [Suspect]
     Active Substance: OMEPRAZOLE MAGNESIUM
     Indication: GASTROOESOPHAGEAL REFLUX DISEASE
     Dosage: SWITCHED BACK AND FORTH BETWEEN 20MG AND 40MG ONCE DAILY
     Route: 048
  9. ATENOLOL. [Suspect]
     Active Substance: ATENOLOL
     Indication: CARDIAC DISORDER
     Route: 048
  10. AMILORIDE [Concomitant]
     Active Substance: AMILORIDE
     Indication: JOINT SWELLING
     Route: 048
     Dates: start: 2010
  11. PLAVIX [Suspect]
     Active Substance: CLOPIDOGREL BISULFATE
     Indication: CORONARY ARTERIAL STENT INSERTION
     Route: 048
     Dates: start: 20091117

REACTIONS (16)
  - Coronary artery occlusion [Unknown]
  - Off label use [Unknown]
  - Ear discomfort [Not Recovered/Not Resolved]
  - Hearing impaired [Unknown]
  - Flatulence [Unknown]
  - Drug ineffective [Unknown]
  - Atrial fibrillation [Unknown]
  - Oesophageal pain [Not Recovered/Not Resolved]
  - Throat irritation [Not Recovered/Not Resolved]
  - Abdominal pain [Unknown]
  - Drug dose omission [Unknown]
  - Abdominal discomfort [Not Recovered/Not Resolved]
  - Blood magnesium decreased [Unknown]
  - Sinus disorder [Not Recovered/Not Resolved]
  - Diarrhoea [Unknown]
  - Dyspepsia [Not Recovered/Not Resolved]

NARRATIVE: CASE EVENT DATE: 201001
